FAERS Safety Report 7948778-4 (Version None)
Quarter: 2011Q4

REPORT INFORMATION
  Report Type: 
  Country: None (occurrence: None)
  Receive Date: 20111130
  Receipt Date: 20111118
  Transmission Date: 20120403
  Serious: Yes (Hospitalization, Other)
  Sender: FDA-Public Use
  Company Number: US-CELGENEUS-163-21880-11111364

PATIENT
  Sex: Male
  Weight: 73.593 kg

DRUGS (12)
  1. DALTEPARIN SODIUM [Concomitant]
     Dosage: 15,000
     Route: 065
     Dates: start: 20111107
  2. ZOMETA [Concomitant]
     Dosage: 4 MILLIGRAM
     Route: 065
  3. DOCUSATE [Concomitant]
     Route: 065
  4. ATENOLOL [Concomitant]
     Dosage: 25 MILLIGRAM
     Route: 065
  5. PROTON PUMP INHIBITOR [Concomitant]
     Route: 065
  6. DALTEPARIN SODIUM [Concomitant]
     Dosage: 7500 U
     Route: 065
     Dates: start: 20111031, end: 20111107
  7. MELOXICAM [Concomitant]
     Dosage: 7.5 MILLIGRAM
     Route: 065
  8. DEXAMETHASONE [Suspect]
     Indication: MULTIPLE MYELOMA
     Dosage: 40 MILLIGRAM
     Route: 048
     Dates: start: 20110802, end: 20111024
  9. CALCIUM + VITAMIN D [Concomitant]
     Route: 065
  10. REVLIMID [Suspect]
     Indication: MULTIPLE MYELOMA
     Dosage: 15 MILLIGRAM
     Route: 048
     Dates: start: 20110802, end: 20111025
  11. ASPIRIN [Concomitant]
     Dosage: 325 MILLIGRAM
     Route: 065
  12. NIFEDIPINE [Concomitant]
     Dosage: 60 MILLIGRAM
     Route: 065

REACTIONS (2)
  - RECTAL CANCER [None]
  - DEEP VEIN THROMBOSIS [None]
